FAERS Safety Report 7021536-3 (Version None)
Quarter: 2010Q3

REPORT INFORMATION
  Report Type: 
  Country: None (occurrence: None)
  Receive Date: 20100928
  Receipt Date: 20100922
  Transmission Date: 20110219
  Serious: Yes (Life-Threatening, Hospitalization)
  Sender: FDA-Public Use
  Company Number: TIR-00207

PATIENT
  Age: 2 Year
  Sex: Female
  Weight: 13 kg

DRUGS (1)
  1. SYNTHROID [Suspect]
     Dosage: ORAL, 40 TABLETS OF 150MCG ONCE
     Route: 048

REACTIONS (8)
  - ACCIDENTAL DRUG INTAKE BY CHILD [None]
  - ACCIDENTAL OVERDOSE [None]
  - ADRENAL INSUFFICIENCY [None]
  - HYPERTENSION [None]
  - HYPERTHERMIA [None]
  - INCORRECT DOSE ADMINISTERED [None]
  - PSYCHOMOTOR HYPERACTIVITY [None]
  - THYROTOXIC CRISIS [None]
